FAERS Safety Report 6980159-2 (Version None)
Quarter: 2010Q3

REPORT INFORMATION
  Report Type: 
  Country: None (occurrence: None)
  Receive Date: 20100914
  Receipt Date: 20100831
  Transmission Date: 20110219
  Serious: Yes (Other)
  Sender: FDA-Public Use
  Company Number: US-RB-013834-10

PATIENT
  Age: 18 Year
  Sex: Male

DRUGS (2)
  1. DELSYM [Suspect]
     Route: 048
     Dates: start: 20100831
  2. DELSYM [Suspect]
     Dosage: INGESTED THE REST OF THE BOTTLE, AMOUNT UNKNOWN.
     Route: 048
     Dates: start: 20100831

REACTIONS (3)
  - FEELING DRUNK [None]
  - OVERDOSE [None]
  - VOMITING [None]
